FAERS Safety Report 10357470 (Version 3)
Quarter: 2014Q4

REPORT INFORMATION
  Report Type: Report from Study
  Country: US (occurrence: US)
  Receive Date: 20140801
  Receipt Date: 20141211
  Transmission Date: 20150528
  Serious: Yes (Other)
  Sender: FDA-Public Use
  Company Number: US-SA-2014SA099843

PATIENT
  Age: 69 Year
  Sex: Female
  Weight: 63.05 kg

DRUGS (8)
  1. LANTUS SOLOSTAR [Suspect]
     Active Substance: INSULIN GLARGINE
     Indication: TYPE 2 DIABETES MELLITUS
     Dosage: START DATE REPORTED AS ^FOR MANY YEARS^ DOSE:60 UNIT(S)
     Route: 065
     Dates: start: 201410
  2. LISINOPRIL. [Concomitant]
     Active Substance: LISINOPRIL
  3. TRAVATAN [Concomitant]
     Active Substance: TRAVOPROST
     Dosage: 1 DROP IN EACH EYE AT BED TIME
     Route: 047
  4. SOLOSTAR [Concomitant]
     Active Substance: DEVICE
     Dosage: DOSE:120 UNIT(S)
     Route: 065
  5. ANASTROZOLE. [Concomitant]
     Active Substance: ANASTROZOLE
  6. METFORMIN [Concomitant]
     Active Substance: METFORMIN HYDROCHLORIDE
  7. HYDROCHLOROTHIAZIDE. [Concomitant]
     Active Substance: HYDROCHLOROTHIAZIDE
  8. SIMVASTATIN. [Concomitant]
     Active Substance: SIMVASTATIN

REACTIONS (3)
  - Drug administration error [Unknown]
  - Breast cancer [Unknown]
  - Nasopharyngitis [Unknown]
